FAERS Safety Report 10441430 (Version 1)
Quarter: 2014Q3

REPORT INFORMATION
  Report Type: Spontaneous
  Country: US (occurrence: None)
  Receive Date: 20140908
  Receipt Date: 20140908
  Transmission Date: 20150326
  Serious: No
  Sender: FDA-Public Use
  Company Number: None

PATIENT
  Age: 70 Year
  Sex: Female
  Weight: 89.36 kg

DRUGS (3)
  1. AMLODIPINE [Suspect]
     Active Substance: AMLODIPINE BESYLATE
     Indication: BLOOD PRESSURE
     Dosage: 5 MG 1 PILL ONCE DAILY BY MOUTH
     Route: 048
     Dates: start: 20140613
  2. AVALIDE [Concomitant]
     Active Substance: HYDROCHLOROTHIAZIDE\IRBESARTAN
  3. VITAMIN B [Concomitant]
     Active Substance: VITAMIN B

REACTIONS (21)
  - Abasia [None]
  - Pruritus [None]
  - Mouth breathing [None]
  - Palpitations [None]
  - Vein disorder [None]
  - Hyperhidrosis [None]
  - Blood pressure decreased [None]
  - Tinnitus [None]
  - Arthropathy [None]
  - Heart rate increased [None]
  - Flatulence [None]
  - Arthralgia [None]
  - Dizziness [None]
  - Anxiety [None]
  - Joint range of motion decreased [None]
  - Ear pruritus [None]
  - Pain [None]
  - Hunger [None]
  - Joint swelling [None]
  - Paraesthesia [None]
  - Pain in extremity [None]

NARRATIVE: CASE EVENT DATE: 20140613
